FAERS Safety Report 5844139-2 (Version None)
Quarter: 2008Q3

REPORT INFORMATION
  Report Type: 
  Country: None (occurrence: None)
  Receive Date: 20080731
  Receipt Date: 20080428
  Transmission Date: 20090109
  Serious: No
  Sender: FDA-Public Use
  Company Number: US200804007198

PATIENT
  Age: 49 Year
  Sex: Female
  Weight: 92.5 kg

DRUGS (11)
  1. BYETTA [Suspect]
     Indication: TYPE 2 DIABETES MELLITUS
     Dosage: 5 UG, 2/D, SUCUTANEOUS
     Route: 058
     Dates: start: 20080422
  2. EXENATIDE 5MCG PEN, DISPOSABLE DEVICE (EXENATIDE PEN (5MCG)) PEN,DISPO [Concomitant]
  3. METFORMIN HCL [Concomitant]
  4. AMARYL [Concomitant]
  5. TRICOR [Concomitant]
  6. PRAVASTATIN [Concomitant]
  7. BENICAR [Concomitant]
  8. EFFEXOR [Concomitant]
  9. TAMOXIFEN CITRATE [Concomitant]
  10. OMEPRAZOLE [Concomitant]
  11. LEVOXYL [Concomitant]

REACTIONS (3)
  - ANOREXIA [None]
  - HEADACHE [None]
  - NAUSEA [None]
